FAERS Safety Report 13928694 (Version 2)
Quarter: 2018Q1

REPORT INFORMATION
  Report Type: Report from Study
  Country: CA (occurrence: CA)
  Receive Date: 20170901
  Receipt Date: 20180119
  Transmission Date: 20180508
  Serious: Yes (Other)
  Sender: FDA-Public Use
  Company Number: CA-ROCHE-1984522

PATIENT

DRUGS (10)
  1. RIBAVIRIN. [Suspect]
     Active Substance: RIBAVIRIN
     Indication: CRYOGLOBULINAEMIA
     Route: 065
  2. PARITAPREVIR [Suspect]
     Active Substance: PARITAPREVIR
     Indication: CRYOGLOBULINAEMIA
     Route: 065
  3. PEG-INTERFERON ALFA 2A [Suspect]
     Active Substance: PEGINTERFERON ALFA-2A
     Indication: CRYOGLOBULINAEMIA
     Route: 065
  4. BOCEPREVIR [Suspect]
     Active Substance: BOCEPREVIR
     Indication: CRYOGLOBULINAEMIA
     Route: 065
  5. DASABUVIR [Suspect]
     Active Substance: DASABUVIR
     Indication: CRYOGLOBULINAEMIA
     Route: 065
  6. SIMEPREVIR [Suspect]
     Active Substance: SIMEPREVIR
     Indication: CRYOGLOBULINAEMIA
     Route: 065
  7. SOFOSBUVIR [Suspect]
     Active Substance: SOFOSBUVIR
     Indication: CRYOGLOBULINAEMIA
     Route: 065
  8. TELAPREVIR [Suspect]
     Active Substance: TELAPREVIR
     Indication: CRYOGLOBULINAEMIA
     Route: 065
  9. OMBITASVIR [Suspect]
     Active Substance: OMBITASVIR
     Indication: CRYOGLOBULINAEMIA
     Route: 065
  10. LEDIPASVIR [Suspect]
     Active Substance: LEDIPASVIR
     Indication: CRYOGLOBULINAEMIA
     Route: 065

REACTIONS (5)
  - Anaemia [Unknown]
  - Nausea [Unknown]
  - Affective disorder [Unknown]
  - Rash [Unknown]
  - Pancytopenia [Unknown]
